FAERS Safety Report 5368877-3 (Version None)
Quarter: 2007Q2

REPORT INFORMATION
  Report Type: 
  Country: None (occurrence: None)
  Receive Date: 20070625
  Receipt Date: 20061106
  Transmission Date: 20071010
  Serious: No
  Sender: FDA-Public Use
  Company Number: US-ASTRAZENECA-2006UW21695

PATIENT
  Age: 66 Year
  Sex: Female
  Weight: 96.6 kg

DRUGS (4)
  1. CRESTOR [Suspect]
     Indication: HYPERCHOLESTEROLAEMIA
     Route: 048
     Dates: start: 20061101
  2. LEVOTHYROXINE SODIUM [Concomitant]
     Route: 048
  3. NORVASC [Concomitant]
     Route: 048
  4. ZOLOFT [Concomitant]
     Route: 048

REACTIONS (1)
  - PAIN IN JAW [None]
